FAERS Safety Report 20017863 (Version 2)
Quarter: 2021Q4

REPORT INFORMATION
  Report Type: Spontaneous
  Country: GR (occurrence: None)
  Receive Date: 20211101
  Receipt Date: 20211112
  Transmission Date: 20220303
  Serious: Yes (Hospitalization)
  Sender: FDA-Public Use
  Company Number: GR-Unichem Pharmaceuticals (USA) Inc-UCM202110-001000

PATIENT
  Age: 72 Year
  Sex: Female

DRUGS (1)
  1. AMLODIPINE [Suspect]
     Active Substance: AMLODIPINE BESYLATE
     Indication: Overdose
     Dosage: OVERDOSE (200 MG OF AMLODIPINE BY ORAL ROUTE)
     Route: 048

REACTIONS (5)
  - Acute pulmonary oedema [Recovering/Resolving]
  - Shock [Recovering/Resolving]
  - Mental status changes [Recovering/Resolving]
  - Hypotension [Recovering/Resolving]
  - Intentional overdose [Unknown]
